FAERS Safety Report 5154840-4 (Version None)
Quarter: 2006Q4

REPORT INFORMATION
  Report Type: 
  Country: None (occurrence: None)
  Receive Date: 20061121
  Receipt Date: 20061110
  Transmission Date: 20070319
  Serious: Yes (Hospitalization, Other)
  Sender: FDA-Public Use
  Company Number: GB-JNJFOC-20061102651

PATIENT
  Sex: Female
  Weight: 57 kg

DRUGS (9)
  1. REMICADE [Suspect]
     Indication: RHEUMATOID ARTHRITIS
     Route: 042
  2. LEFLUNOMIDE [Concomitant]
     Route: 065
  3. KENALOG [Concomitant]
     Route: 065
  4. CO-PROXAMOL [Concomitant]
     Route: 065
  5. HRT [Concomitant]
     Route: 065
  6. HYDROXYCHLOROQUINE SULFATE [Concomitant]
     Route: 065
  7. MYOCRISIN [Concomitant]
     Route: 065
  8. VISCOTEARS [Concomitant]
     Route: 065
  9. VOLTAREN [Concomitant]
     Route: 065

REACTIONS (1)
  - HIP FRACTURE [None]
